FAERS Safety Report 10012088 (Version 3)
Quarter: 2014Q2

REPORT INFORMATION
  Report Type: Spontaneous
  Country: GB (occurrence: GB)
  Receive Date: 20140314
  Receipt Date: 20140401
  Transmission Date: 20141212
  Serious: Yes (Hospitalization, Other)
  Sender: FDA-Public Use
  Company Number: GB-PFIZER INC-2014067972

PATIENT
  Sex: 0

DRUGS (5)
  1. EXEMESTANE [Suspect]
     Indication: BREAST CANCER
     Route: 048
  2. EVEROLIMUS [Suspect]
     Indication: BREAST CANCER
     Dosage: 5 MG, 1X/DAY
     Route: 048
  3. EVEROLIMUS [Suspect]
     Dosage: 10 MG, 1X/DAY
     Route: 048
  4. EVEROLIMUS [Suspect]
     Dosage: 5 MG, 1X/DAY
     Route: 048
  5. EVEROLIMUS [Suspect]
     Dosage: UNK

REACTIONS (10)
  - Ascites [Unknown]
  - Muscle spasms [Unknown]
  - Headache [Unknown]
  - Diarrhoea [Recovered/Resolved]
  - Malaise [Unknown]
  - Fatigue [Unknown]
  - Mouth ulceration [Unknown]
  - Abdominal discomfort [Unknown]
  - Viral infection [Unknown]
  - Weight decreased [Unknown]
